FAERS Safety Report 13176627 (Version 1)
Quarter: 2017Q1

REPORT INFORMATION
  Report Type: Spontaneous
  Country: US (occurrence: US)
  Receive Date: 20170201
  Receipt Date: 20170201
  Transmission Date: 20170428
  Serious: No
  Sender: FDA-Public Use
  Company Number: US-009507513-1701USA013622

PATIENT
  Sex: Female

DRUGS (3)
  1. PROVENTIL [Concomitant]
     Active Substance: ALBUTEROL
  2. SINGULAIR [Concomitant]
     Active Substance: MONTELUKAST SODIUM
  3. DULERA [Suspect]
     Active Substance: FORMOTEROL FUMARATE DIHYDRATE\MOMETASONE FUROATE
     Indication: ASTHMA
     Dosage: 200/5 MICROGRAM / 2 PUFFS DAILY
     Route: 055

REACTIONS (5)
  - Productive cough [Not Recovered/Not Resolved]
  - Dry throat [Not Recovered/Not Resolved]
  - Product quality issue [Unknown]
  - Dyspnoea [Not Recovered/Not Resolved]
  - Drug dose omission [Unknown]
